FAERS Safety Report 7422064-3 (Version None)
Quarter: 2011Q2

REPORT INFORMATION
  Report Type: 
  Country: None (occurrence: None)
  Receive Date: 20110418
  Receipt Date: 20110412
  Transmission Date: 20111010
  Serious: Yes (Other)
  Sender: FDA-Public Use
  Company Number: US-GILEAD-2011-0038490

PATIENT
  Sex: Male

DRUGS (8)
  1. LOMOTIL [Concomitant]
  2. FAMOTIDINE [Concomitant]
  3. ATRIPLA [Suspect]
     Indication: HIV INFECTION
     Dates: start: 20060101
  4. L-CARNITINE [Concomitant]
  5. AMBIEN [Concomitant]
  6. CIALIS [Concomitant]
  7. CHOLESTYRAMINE [Concomitant]
  8. ENTOCORT EC [Concomitant]

REACTIONS (3)
  - OSTEOPENIA [None]
  - OSTEONECROSIS [None]
  - HIP FRACTURE [None]
